FAERS Safety Report 10960597 (Version 1)
Quarter: 2015Q1

REPORT INFORMATION
  Report Type: Spontaneous
  Country: US (occurrence: None)
  Receive Date: 20150326
  Receipt Date: 20150326
  Transmission Date: 20150721
  Serious: Yes (Other)
  Sender: FDA-Public Use
  Company Number: None

PATIENT
  Age: 44 Year
  Sex: Female
  Weight: 58.06 kg

DRUGS (26)
  1. CYANOCOBALAMIN. [Concomitant]
     Active Substance: CYANOCOBALAMIN
  2. LORATADINE. [Concomitant]
     Active Substance: LORATADINE
  3. DOCUSATE/BENZOCAINE ENEMA [Concomitant]
  4. CETAPHIL LOTION [Concomitant]
  5. PREPARATION-H OINTMENT [Concomitant]
  6. ACETAMINOPHEN. [Concomitant]
     Active Substance: ACETAMINOPHEN
  7. ESCITALOPRAM [Concomitant]
     Active Substance: ESCITALOPRAM OXALATE
  8. ALPRAZOLAM. [Concomitant]
     Active Substance: ALPRAZOLAM
  9. ZALEPLON. [Concomitant]
     Active Substance: ZALEPLON
  10. VITAMIN E [Concomitant]
     Active Substance: .ALPHA.-TOCOPHEROL
  11. DICLOFENAC GEL [Concomitant]
  12. CULTURELLE [Concomitant]
     Active Substance: LACTOBACILLUS RHAMNOSUS
  13. GRALISE [Suspect]
     Active Substance: GABAPENTIN
     Indication: NEURALGIA
     Route: 048
     Dates: start: 20150305, end: 20150325
  14. DIBUCAINE OINTMENT [Concomitant]
  15. BACLOFEN. [Concomitant]
     Active Substance: BACLOFEN
  16. LEVOTHYROXINE [Concomitant]
     Active Substance: LEVOTHYROXINE
  17. NAPROXEN. [Concomitant]
     Active Substance: NAPROXEN
  18. METHYLPHENIDATE [Concomitant]
     Active Substance: METHYLPHENIDATE
  19. CALCIUM [Concomitant]
     Active Substance: CALCIUM
  20. UREA CREAM WITH MOISTURIZING CREAM [Concomitant]
     Active Substance: UREA
  21. MICONAZOLE CREAM [Concomitant]
  22. MAGNESIUM OXIDE. [Concomitant]
     Active Substance: MAGNESIUM OXIDE
  23. HYDROCODONE/APAP [Concomitant]
     Active Substance: ACETAMINOPHEN\HYDROCODONE
  24. ASPIRIN. [Concomitant]
     Active Substance: ASPIRIN
  25. PROMETHAZINE [Concomitant]
     Active Substance: PROMETHAZINE\PROMETHAZINE HYDROCHLORIDE
  26. CLONAZEPAM. [Concomitant]
     Active Substance: CLONAZEPAM

REACTIONS (1)
  - Oedema peripheral [None]

NARRATIVE: CASE EVENT DATE: 20150306
